FAERS Safety Report 9372820 (Version 1)
Quarter: 2013Q2

REPORT INFORMATION
  Report Type: Spontaneous
  Country: US (occurrence: US)
  Receive Date: 20130627
  Receipt Date: 20130627
  Transmission Date: 20140414
  Serious: Yes (Hospitalization)
  Sender: FDA-Public Use
  Company Number: US-JNJFOC-20130611406

PATIENT
  Age: 51 Year
  Sex: Female
  Weight: 69.85 kg

DRUGS (5)
  1. XARELTO [Suspect]
     Indication: IMPLANTABLE DEFIBRILLATOR INSERTION
     Route: 048
     Dates: start: 20130613
  2. XARELTO [Suspect]
     Indication: IMPLANTABLE DEFIBRILLATOR INSERTION
     Route: 048
     Dates: end: 20130611
  3. XARELTO [Suspect]
     Indication: ATRIAL FLUTTER
     Route: 048
     Dates: end: 20130611
  4. XARELTO [Suspect]
     Indication: ATRIAL FLUTTER
     Route: 048
     Dates: start: 20130613
  5. LOVENOX [Concomitant]
     Indication: PRODUCT USED FOR UNKNOWN INDICATION
     Route: 065

REACTIONS (3)
  - Splenic infarction [Not Recovered/Not Resolved]
  - Adverse event [Unknown]
  - Off label use [Unknown]
